FAERS Safety Report 9785488 (Version 1)
Quarter: 2013Q4

REPORT INFORMATION
  Report Type: Spontaneous
  Country: US (occurrence: None)
  Receive Date: 20131226
  Receipt Date: 20131226
  Transmission Date: 20140711
  Serious: Yes (Other)
  Sender: FDA-Public Use
  Company Number: None

PATIENT
  Age: 52 Year
  Sex: Female
  Weight: 64.41 kg

DRUGS (14)
  1. HIZENTRA [Suspect]
     Indication: IMMUNODEFICIENCY COMMON VARIABLE
     Dosage: 30 ML WEEKLY GIVEN INTO/UNDER THE SKIN
     Dates: start: 20131104, end: 20131210
  2. HIZENTRA [Suspect]
     Indication: PRIMARY IMMUNODEFICIENCY SYNDROME
     Dosage: 30 ML WEEKLY GIVEN INTO/UNDER THE SKIN
     Dates: start: 20131104, end: 20131210
  3. PLAQUENIL [Concomitant]
  4. SERTRALINE [Concomitant]
  5. SPORANOX [Suspect]
  6. AZITHROMYCIN [Suspect]
  7. ADVAIR [Suspect]
  8. NEBULIZER [Suspect]
  9. FLAXSEED OIL [Suspect]
  10. VITAMIN D [Suspect]
  11. NAPROXEN SODIUM [Suspect]
  12. ZYRTEC [Suspect]
  13. CALCIUM D [Suspect]
  14. MULTIVITAMIN [Suspect]

REACTIONS (5)
  - Infusion site pain [None]
  - Infusion site erythema [None]
  - Infusion site swelling [None]
  - Infusion site reaction [None]
  - Fear [None]
